FAERS Safety Report 6651047 (Version 5)
Quarter: 2013Q2

REPORT INFORMATION
  Report Type: Spontaneous
  Country: DK (occurrence: DK)
  Receive Date: 20080528
  Receipt Date: 20130528
  Transmission Date: 20140414
  Serious: Yes (Hospitalization, Disabling)
  Sender: FDA-Public Use
  Company Number: DK-PFIZER INC-2008043913

PATIENT
  Age: 25 Year
  Sex: Female
  Weight: 67 kg

DRUGS (1)
  1. SYNARELA [Suspect]
     Indication: IN VITRO FERTILISATION
     Dosage: 200 UG, 3X/DAY
     Route: 045
     Dates: start: 20080504, end: 20080507

REACTIONS (5)
  - Thrombotic cerebral infarction [Recovered/Resolved with Sequelae]
  - Hemiparesis [Unknown]
  - Cognitive disorder [Unknown]
  - Fatigue [Unknown]
  - Anxiety [Unknown]
